FAERS Safety Report 15413826 (Version 1)
Quarter: 2018Q3

REPORT INFORMATION
  Report Type: Spontaneous
  Country: AU (occurrence: AU)
  Receive Date: 20180921
  Receipt Date: 20180921
  Transmission Date: 20181010
  Serious: Yes (Other)
  Sender: FDA-Public Use
  Company Number: AU-ALLERGAN-1845216US

PATIENT
  Age: 56 Year
  Sex: Female

DRUGS (2)
  1. BOTOX [Suspect]
     Active Substance: ONABOTULINUMTOXINA
     Indication: SKIN WRINKLING
  2. BOTOX [Suspect]
     Active Substance: ONABOTULINUMTOXINA
     Indication: SKIN WRINKLING
     Dosage: 56 UNITS, SINGLE
     Route: 058
     Dates: start: 201804, end: 201804

REACTIONS (11)
  - Neck pain [Unknown]
  - Dizziness [Unknown]
  - Nausea [Unknown]
  - Musculoskeletal stiffness [Unknown]
  - Incorrect route of drug administration [Unknown]
  - Headache [Not Recovered/Not Resolved]
  - Vestibular neuronitis [Unknown]
  - Influenza like illness [Unknown]
  - Diarrhoea [Unknown]
  - Off label use [Unknown]
  - Injury [Unknown]

NARRATIVE: CASE EVENT DATE: 201804
